FAERS Safety Report 5972732-5 (Version None)
Quarter: 2008Q4

REPORT INFORMATION
  Report Type: 
  Country: None (occurrence: None)
  Receive Date: 20081125
  Receipt Date: 20081111
  Transmission Date: 20090506
  Serious: Yes (Hospitalization)
  Sender: FDA-Public Use
  Company Number: GXKR2008CA08956

PATIENT
  Age: 67 Year
  Sex: Female
  Weight: 55 kg

DRUGS (24)
  1. NITROGLYCERIN [Suspect]
     Indication: BLOOD PRESSURE INCREASED
     Dosage: INTRAVENOUS
     Route: 042
     Dates: start: 20080828, end: 20080828
  2. PHENYLEPHRINE HCL INJ USP (NGX) (PHENYLEPHRINE) UNKNOWN [Suspect]
     Indication: HYPOTENSION
     Dosage: 4 MG TOTAL, INTRAVENOUS
     Route: 042
     Dates: start: 20080828, end: 20080828
  3. PROTAMINE SULFATE [Suspect]
     Indication: HEPARIN NEUTRALISATION THERAPY
     Dosage: 250 MG, INTRAVENOUS
     Route: 042
     Dates: start: 20080828, end: 20080828
  4. PROTAMINE SULFATE [Suspect]
  5. PROTAMINE SULFATE [Suspect]
  6. TRANEXAMIC ACID INJ BP (NGX) (TRANEXAMIC ACID) UNKNOWN [Suspect]
     Indication: HAEMORRHAGE PROPHYLAXIS
     Dosage: 7 G, INTRAVENOUS
     Route: 042
     Dates: start: 20080828, end: 20080828
  7. TRANEXAMIC ACID INJ BP (NGX) (TRANEXAMIC ACID) UNKNOWN [Suspect]
  8. HEPARIN [Suspect]
     Indication: ANTICOAGULANT THERAPY
     Dosage: 25000 IU/DAY, INTRAVENOUS
     Route: 042
  9. FENTANYL-100 [Concomitant]
  10. INSULIN (INSULIN) [Concomitant]
  11. MANNITOL [Concomitant]
  12. VALIUM [Concomitant]
  13. MIDAZOLAM HCL [Concomitant]
  14. PAPAVERINE (PAPAVERINE) [Concomitant]
  15. PANCURONIUM [Concomitant]
  16. CALCIUM CHLORIDE [Concomitant]
  17. EPEINEPHRINE (EPINEPHRINE) [Concomitant]
  18. MORPHINE [Concomitant]
  19. PROPOFOL [Concomitant]
  20. SEVOFLURANE [Concomitant]
  21. SODIUM BICARBONATE IN PLASTIC CONTAINER [Concomitant]
  22. VANCOMYCIN [Concomitant]
  23. MAGNESIUM SULFATE [Concomitant]
  24. BACITRACIN [Concomitant]

REACTIONS (1)
  - GRAND MAL CONVULSION [None]
